FAERS Safety Report 12204821 (Version 1)
Quarter: 2016Q1

REPORT INFORMATION
  Report Type: Spontaneous
  Country: US (occurrence: US)
  Receive Date: 20160323
  Receipt Date: 20160323
  Transmission Date: 20160526
  Serious: Yes (Death, Hospitalization)
  Sender: FDA-Public Use
  Company Number: US-PFIZER INC-2016159068

PATIENT
  Age: 4 Year
  Sex: Male

DRUGS (2)
  1. ASPIRIN. [Concomitant]
     Active Substance: ASPIRIN
     Dosage: 2.5 GRAINS, ON ONE OR TWO OCCASIONS
     Dates: start: 1951
  2. CHLOROMYCETIN [Suspect]
     Active Substance: CHLORAMPHENICOL
     Dosage: 250 MG, 4X/DAY, RECEIVED A TOTAL OF 18 DOSES
     Dates: start: 19510708

REACTIONS (1)
  - Aplastic anaemia [Fatal]
